FAERS Safety Report 17293352 (Version 1)
Quarter: 2020Q1

REPORT INFORMATION
  Report Type: Spontaneous
  Country: US (occurrence: US)
  Receive Date: 20200120
  Receipt Date: 20200120
  Transmission Date: 20200409
  Serious: Yes (Death)
  Sender: FDA-Public Use
  Company Number: None

PATIENT
  Age: 62 Year
  Sex: Female
  Weight: 60.75 kg

DRUGS (1)
  1. HYDROXYZINE HCL 25 MG TABLET, 25 MG [Suspect]
     Active Substance: HYDROXYZINE HYDROCHLORIDE
     Indication: HAEMOGLOBIN INCREASED
     Dosage: ?          QUANTITY:1 TABLET(S);?
     Route: 048
     Dates: start: 20200114, end: 20200114

REACTIONS (2)
  - Cardiac disorder [None]
  - Death [None]

NARRATIVE: CASE EVENT DATE: 20200114
